FAERS Safety Report 11380919 (Version 2)
Quarter: 2015Q3

REPORT INFORMATION
  Report Type: Spontaneous
  Country: US (occurrence: US)
  Receive Date: 20150814
  Receipt Date: 20150910
  Transmission Date: 20151125
  Serious: No
  Sender: FDA-Public Use
  Company Number: US-JNJFOC-20150720648

PATIENT
  Age: 26 Year
  Sex: Female
  Weight: 63.5 kg

DRUGS (1)
  1. SIMPONI [Suspect]
     Active Substance: GOLIMUMAB
     Indication: CROHN^S DISEASE
     Route: 058
     Dates: start: 20150113

REACTIONS (5)
  - Fatigue [Unknown]
  - Drug dose omission [Not Recovered/Not Resolved]
  - Device malfunction [Unknown]
  - Malaise [Unknown]
  - Somnolence [Unknown]

NARRATIVE: CASE EVENT DATE: 2015
